FAERS Safety Report 13449334 (Version 1)
Quarter: 2017Q2

REPORT INFORMATION
  Report Type: Report from Study
  Country: DE (occurrence: DE)
  Receive Date: 20170417
  Receipt Date: 20170417
  Transmission Date: 20170830
  Serious: Yes (Other)
  Sender: FDA-Public Use
  Company Number: DE-BAXALTA-2017BLT003034

PATIENT
  Age: 53 Year
  Sex: Male

DRUGS (1)
  1. HYQVIA [Suspect]
     Active Substance: HUMAN IMMUNOGLOBULIN G\HYALURONIDASE RECOMBINANT HUMAN
     Indication: PRIMARY IMMUNODEFICIENCY SYNDROME
     Dosage: UNK UNK, EVERY 4 WK
     Route: 065

REACTIONS (5)
  - Infection [Recovered/Resolved]
  - Local reaction [Recovered/Resolved]
  - Injection site pain [Recovered/Resolved]
  - Drug effect decreased [Recovered/Resolved]
  - Haematoma [Recovered/Resolved]
